FAERS Safety Report 9860059 (Version 1)
Quarter: 2014Q1

REPORT INFORMATION
  Report Type: Spontaneous
  Country: EE (occurrence: EE)
  Receive Date: 20140131
  Receipt Date: 20140131
  Transmission Date: 20141002
  Serious: Yes (Other)
  Sender: FDA-Public Use
  Company Number: US-ASTRAZENECA-2014SE05926

PATIENT
  Sex: Female

DRUGS (2)
  1. METOPROLOL [Suspect]
     Indication: HYPERTENSION
     Route: 048
  2. BETALOC ZOK [Suspect]
     Indication: HYPERTENSION
     Route: 048

REACTIONS (7)
  - Heart rate increased [Unknown]
  - Palpitations [Recovered/Resolved]
  - Tremor [Recovered/Resolved]
  - Cyanosis [Unknown]
  - Blood pressure decreased [Unknown]
  - Lethargy [Unknown]
  - Peripheral coldness [Recovered/Resolved]
